FAERS Safety Report 24105693 (Version 1)
Quarter: 2024Q3

REPORT INFORMATION
  Report Type: Spontaneous
  Country: US (occurrence: US)
  Receive Date: 20240717
  Receipt Date: 20240717
  Transmission Date: 20241016
  Serious: No
  Sender: SANOFI AVENTIS
  Company Number: US-SA-SAC20240712001074

PATIENT
  Age: 43 Year
  Sex: Male
  Weight: 229 kg

DRUGS (1)
  1. REZUROCK [Suspect]
     Active Substance: BELUMOSUDIL
     Indication: Acute myeloid leukaemia
     Dosage: 200 MG, QD
     Route: 048

REACTIONS (3)
  - Dry eye [Unknown]
  - Dry mouth [Unknown]
  - Product use in unapproved indication [Unknown]
